FAERS Safety Report 8746786 (Version 2)
Quarter: 2012Q4

REPORT INFORMATION
  Report Type: 
  Country: GB (occurrence: GB)
  Receive Date: 20120827
  Receipt Date: 20121009
  Transmission Date: 20130627
  Serious: Yes (Other)
  Sender: FDA-Public Use
  Company Number: GB-SANOFI-AVENTIS-2012SA060198

PATIENT
  Age: 47 Year
  Sex: Female

DRUGS (3)
  1. PLAQUENIL [Suspect]
     Indication: RHEUMATOID ARTHRITIS
     Route: 048
     Dates: start: 20120315, end: 20120316
  2. RAMIPRIL [Concomitant]
  3. CO-CODAMOL [Concomitant]
     Dosage: occasionally

REACTIONS (4)
  - Haematoma [Recovered/Resolved with Sequelae]
  - Gingival bleeding [Recovered/Resolved]
  - Abdominal pain upper [Recovered/Resolved]
  - Rash [Recovered/Resolved]
